FAERS Safety Report 24033363 (Version 1)
Quarter: 2024Q3

REPORT INFORMATION
  Report Type: Report from Study
  Country: BR (occurrence: BR)
  Receive Date: 20240701
  Receipt Date: 20240701
  Transmission Date: 20241016
  Serious: No
  Sender: ROCHE
  Company Number: BR-ROCHE-3435336

PATIENT
  Age: 27 Year
  Sex: Female
  Weight: 58.0 kg

DRUGS (1)
  1. EVRYSDI [Suspect]
     Active Substance: RISDIPLAM
     Indication: Spinal muscular atrophy
     Route: 065

REACTIONS (4)
  - Weight increased [Recovered/Resolved]
  - Weight increased [Recovered/Resolved]
  - Anxiety [Unknown]
  - Overweight [Unknown]
